FAERS Safety Report 16047684 (Version 1)
Quarter: 2019Q1

REPORT INFORMATION
  Report Type: Spontaneous
  Country: US (occurrence: US)
  Receive Date: 20190307
  Receipt Date: 20190307
  Transmission Date: 20190418
  Serious: No
  Sender: FDA-Public Use
  Company Number: US-BAUSCH-BL-2019-006116

PATIENT
  Sex: Female

DRUGS (1)
  1. PROLENSA [Suspect]
     Active Substance: BROMFENAC SODIUM
     Indication: RETINAL OEDEMA
     Dosage: IN THE RIGHT EYE
     Route: 047
     Dates: start: 201902

REACTIONS (1)
  - Eye irritation [Not Recovered/Not Resolved]

NARRATIVE: CASE EVENT DATE: 201902
